FAERS Safety Report 13789642 (Version 1)
Quarter: 2017Q3

REPORT INFORMATION
  Report Type: Spontaneous
  Country: GB (occurrence: GB)
  Receive Date: 20170725
  Receipt Date: 20170725
  Transmission Date: 20171127
  Serious: Yes (Hospitalization, Other)
  Sender: FDA-Public Use
  Company Number: GB-PFIZER INC-2017317455

PATIENT
  Age: 55 Year
  Sex: Female
  Weight: 73 kg

DRUGS (4)
  1. CARBOPLATIN. [Suspect]
     Active Substance: CARBOPLATIN
     Indication: BREAST CANCER
     Dosage: 790 MG, UNK
     Route: 042
     Dates: start: 20170705, end: 20170705
  2. FILGRASTIM [Concomitant]
     Active Substance: FILGRASTIM
     Dosage: 480 UG, 1X/DAY
     Dates: start: 20170705, end: 20170712
  3. PERJETA [Suspect]
     Active Substance: PERTUZUMAB
     Indication: BREAST CANCER
     Dosage: 840 MG, UNK INITIAL LOADING DOSE
     Route: 042
     Dates: start: 20170705, end: 20170705
  4. TRASTUZUMAB. [Suspect]
     Active Substance: TRASTUZUMAB
     Indication: BREAST CANCER
     Dosage: 609 MG, UNK INITIAL LOADING DOSE
     Route: 042
     Dates: start: 20170705, end: 20170705

REACTIONS (2)
  - Acute hepatic failure [Not Recovered/Not Resolved]
  - Neutropenic sepsis [Recovering/Resolving]

NARRATIVE: CASE EVENT DATE: 20170711
